FAERS Safety Report 5301208-3 (Version None)
Quarter: 2007Q2

REPORT INFORMATION
  Report Type: 
  Country: None (occurrence: None)
  Receive Date: 20070411
  Receipt Date: 20070330
  Transmission Date: 20071010
  Serious: Yes (Life-Threatening, Hospitalization)
  Sender: FDA-Public Use
  Company Number: 2007SP004808

PATIENT
  Age: 45 Year
  Sex: Female
  Weight: 75.8 kg

DRUGS (5)
  1. PEG-INTRON [Suspect]
     Indication: HEPATITIS C
     Dosage: 0.60 ML; QW; SC
     Route: 058
     Dates: start: 20060427, end: 20070308
  2. RIBAVIRIN [Suspect]
     Indication: HEPATITIS C
     Dosage: 1000 MG; QD; PO
     Route: 048
     Dates: start: 20060427, end: 20070311
  3. ACETAMINOPHEN [Concomitant]
  4. FLUOXETINE [Concomitant]
  5. OMEPRAZOLE [Concomitant]

REACTIONS (6)
  - APPENDICITIS PERFORATED [None]
  - BETA HAEMOLYTIC STREPTOCOCCAL INFECTION [None]
  - DYSPEPSIA [None]
  - GANGRENE [None]
  - PERITONEAL ABSCESS [None]
  - REFUSAL OF TREATMENT BY PATIENT [None]
